FAERS Safety Report 7410964-X (Version None)
Quarter: 2011Q2

REPORT INFORMATION
  Report Type: 
  Country: None (occurrence: None)
  Receive Date: 20110413
  Receipt Date: 20110331
  Transmission Date: 20111010
  Serious: Yes (Other)
  Sender: FDA-Public Use
  Company Number: IR-RANBAXY-2011RR-43508

PATIENT
  Age: 60 Year
  Sex: Male

DRUGS (2)
  1. FLUMAZENIL [Suspect]
     Indication: TOXICITY TO VARIOUS AGENTS
     Dosage: 0.2 MG, UNK
  2. LORAZEPAM [Suspect]

REACTIONS (3)
  - COMA [None]
  - OVERDOSE [None]
  - VENTRICULAR TACHYCARDIA [None]
